FAERS Safety Report 9335876 (Version 1)
Quarter: 2013Q2

REPORT INFORMATION
  Report Type: Spontaneous
  Country: US (occurrence: US)
  Receive Date: 20130606
  Receipt Date: 20130606
  Transmission Date: 20140414
  Serious: No
  Sender: FDA-Public Use
  Company Number: US-AMGEN-USASP2013004480

PATIENT
  Age: 74 Year
  Sex: Female

DRUGS (2)
  1. PROLIA [Suspect]
     Indication: OSTEOPOROSIS POSTMENOPAUSAL
     Dosage: UNK
     Dates: start: 2011
  2. VITAMINS                           /00067501/ [Concomitant]

REACTIONS (7)
  - Mobility decreased [Unknown]
  - Tooth infection [Unknown]
  - Myalgia [Unknown]
  - Cystitis [Unknown]
  - Back pain [Unknown]
  - Pain in extremity [Unknown]
  - Rash [Unknown]
